FAERS Safety Report 9638167 (Version 1)
Quarter: 2013Q4

REPORT INFORMATION
  Report Type: Spontaneous
  Country: US (occurrence: US)
  Receive Date: 20131022
  Receipt Date: 20131022
  Transmission Date: 20140711
  Serious: No
  Sender: FDA-Public Use
  Company Number: US-PFIZER INC-2013300029

PATIENT
  Age: 47 Year
  Sex: Male

DRUGS (1)
  1. XALKORI [Suspect]
     Indication: NON-SMALL CELL LUNG CANCER STAGE IV
     Dosage: 200 MG, DAILY
     Route: 048

REACTIONS (1)
  - Myalgia [Recovered/Resolved with Sequelae]
